FAERS Safety Report 7363896-X (Version None)
Quarter: 2011Q1

REPORT INFORMATION
  Report Type: 
  Country: None (occurrence: None)
  Receive Date: 20110321
  Receipt Date: 20110314
  Transmission Date: 20110831
  Serious: Yes (Death)
  Sender: FDA-Public Use
  Company Number: DE-ROCHE-765485

PATIENT

DRUGS (3)
  1. AZATHIOPRINE [Suspect]
     Route: 065
  2. MYCOPHENOLATE MOFETIL [Suspect]
     Dosage: DOSE: TARGET LEVEL 1.5 TO 4.0 MG/L
     Route: 065
  3. CYCLOSPORINE [Suspect]
     Dosage: BLOOD THROUGH LEVEL 225 AND 275 NG/ML WITHIN THE FIRST 3 MONTHS THEN REDUCED
     Route: 065

REACTIONS (1)
  - NEOPLASM MALIGNANT [None]
